FAERS Safety Report 17786435 (Version 1)
Quarter: 2020Q2

REPORT INFORMATION
  Report Type: Spontaneous
  Country: SE (occurrence: SE)
  Receive Date: 20200514
  Receipt Date: 20200514
  Transmission Date: 20200714
  Serious: Yes (Other)
  Sender: FDA-Public Use
  Company Number: SE-TEVA-2020-SE-1234800

PATIENT
  Age: 32 Year
  Sex: Male

DRUGS (1)
  1. VENLAFAXIN ACTAVIS [Suspect]
     Active Substance: VENLAFAXINE HYDROCHLORIDE
     Route: 065
     Dates: end: 20200414

REACTIONS (11)
  - Vision blurred [Unknown]
  - Dizziness [Unknown]
  - Epistaxis [Unknown]
  - Fatigue [Unknown]
  - Speech disorder [Unknown]
  - Musculoskeletal stiffness [Unknown]
  - Epilepsy [Unknown]
  - Contusion [Unknown]
  - Hypoaesthesia [Unknown]
  - Muscle spasms [Unknown]
  - Somnolence [Unknown]

NARRATIVE: CASE EVENT DATE: 20200310
